FAERS Safety Report 7398779-2 (Version None)
Quarter: 2011Q2

REPORT INFORMATION
  Report Type: 
  Country: None (occurrence: None)
  Receive Date: 20110401
  Receipt Date: 20110401
  Transmission Date: 20111010
  Serious: No
  Sender: FDA-Public Use
  Company Number: None

PATIENT
  Age: 68 Year
  Sex: Female
  Weight: 77 kg

DRUGS (1)
  1. MOXIFLOXACIN [Suspect]
     Indication: INFECTION
     Dosage: 400 MG UD IV
     Route: 042
     Dates: start: 20110119, end: 20110119

REACTIONS (7)
  - BRONCHITIS [None]
  - CHEST PAIN [None]
  - MUCOSAL DRYNESS [None]
  - THROAT TIGHTNESS [None]
  - DISORIENTATION [None]
  - TREMOR [None]
  - DIZZINESS [None]
